FAERS Safety Report 6474952-2 (Version None)
Quarter: 2009Q4

REPORT INFORMATION
  Report Type: 
  Country: None (occurrence: None)
  Receive Date: 20091204
  Receipt Date: 20090507
  Transmission Date: 20100525
  Serious: Yes (Hospitalization, Other)
  Sender: FDA-Public Use
  Company Number: FR-ELI_LILLY_AND_COMPANY-FR200903005596

PATIENT
  Sex: Female
  Weight: 108 kg

DRUGS (12)
  1. BYETTA [Suspect]
     Indication: TYPE 2 DIABETES MELLITUS
     Dosage: 5 UG, 2/D
     Route: 058
     Dates: start: 20080901, end: 20081001
  2. BYETTA [Suspect]
     Dosage: 10 UG, 2/D
     Route: 058
     Dates: start: 20081001, end: 20090311
  3. HEMI-DAONIL [Concomitant]
     Indication: TYPE 2 DIABETES MELLITUS
     Dosage: 7.5 MG, DAILY (1/D)
     Route: 048
     Dates: start: 20040101
  4. METFORMIN HCL [Concomitant]
     Indication: TYPE 2 DIABETES MELLITUS
     Dosage: 700 MG, 3/D
     Route: 048
  5. TAREG [Concomitant]
     Indication: HYPERTENSION
     Dosage: 160 MG, DAILY (1/D)
     Route: 048
     Dates: end: 20090310
  6. LASILIX [Concomitant]
     Indication: HYPERTENSION
     Dosage: 40 MG, DAILY (1/D)
     Route: 048
     Dates: end: 20090310
  7. EXFORGE                            /01634301/ [Concomitant]
     Indication: HYPERTENSION
     Dosage: TABLET
     Route: 048
     Dates: start: 20090310
  8. LODOZ [Concomitant]
     Indication: HYPERTENSION
     Dosage: 10 MG, DAILY (1/D)
     Route: 048
     Dates: start: 20090310
  9. FLECAINIDE ACETATE [Concomitant]
     Indication: VENTRICULAR EXTRASYSTOLES
     Dosage: 200 MG, DAILY (1/D)
     Route: 048
  10. KARDEGIC [Concomitant]
     Dosage: 75 MG, DAILY (1/D)
     Route: 048
  11. LEVOTHYROXINE SODIUM [Concomitant]
     Indication: HYPOTHYROIDISM
     Dosage: 50 UG, DAILY (1/D)
     Route: 048
     Dates: start: 19990101
  12. IXPRIM [Concomitant]
     Indication: PAIN
     Dosage: TABLET
     Route: 048

REACTIONS (4)
  - EAR PAIN [None]
  - FACIAL PALSY [None]
  - HERPES ZOSTER [None]
  - HYPERTENSION [None]
